FAERS Safety Report 9549733 (Version 1)
Quarter: 2013Q3

REPORT INFORMATION
  Report Type: Spontaneous
  Country: US (occurrence: US)
  Receive Date: 20130924
  Receipt Date: 20130924
  Transmission Date: 20140515
  Serious: No
  Sender: FDA-Public Use
  Company Number: US-ALLERGAN-1312896US

PATIENT
  Age: 75 Year
  Sex: Female

DRUGS (2)
  1. LUMIGAN 0.01% [Suspect]
     Indication: INTRAOCULAR PRESSURE INCREASED
     Dosage: 2 GTT, QHS
     Route: 047
     Dates: start: 201308
  2. METOPROLOL [Concomitant]
     Indication: BLOOD PRESSURE

REACTIONS (3)
  - Blood pressure increased [Unknown]
  - Headache [Unknown]
  - Dizziness [Unknown]
